FAERS Safety Report 8726927 (Version 3)
Quarter: 2012Q4

REPORT INFORMATION
  Report Type: 
  Country: JP (occurrence: JP)
  Receive Date: 20120816
  Receipt Date: 20120910
  Transmission Date: 20130627
  Serious: Yes (Hospitalization)
  Sender: FDA-Public Use
  Company Number: DE-ASTRAZENECA-2012SE56520

PATIENT
  Age: 70 Year
  Sex: Female
  Weight: 43 kg

DRUGS (7)
  1. BLOPRESS [Suspect]
     Indication: HYPERTENSION
     Route: 048
     Dates: start: 201205, end: 20120717
  2. ROZEREM [Suspect]
     Indication: SLEEP DISORDER
     Route: 048
     Dates: start: 20120712, end: 20120717
  3. TAKEPRON OD [Concomitant]
     Indication: GASTRITIS
     Route: 048
     Dates: start: 20120710, end: 20120717
  4. NORVASC [Concomitant]
     Indication: HYPERTENSION
     Route: 048
     Dates: start: 201205, end: 20120717
  5. THREENOFEN [Concomitant]
     Indication: BACK PAIN
     Route: 048
     Dates: start: 20120710, end: 20120717
  6. FORSENID [Concomitant]
     Indication: CONSTIPATION
     Route: 048
     Dates: start: 20120715, end: 20120718
  7. CRAVIT [Concomitant]
     Indication: PYREXIA
     Route: 048
     Dates: start: 20120713, end: 20120719

REACTIONS (7)
  - Cognitive disorder [Unknown]
  - Altered state of consciousness [Unknown]
  - Eating disorder [Unknown]
  - Dizziness [Recovered/Resolved]
  - Nausea [Recovered/Resolved]
  - Vomiting [Recovered/Resolved]
  - Depressed level of consciousness [Recovered/Resolved]
